FAERS Safety Report 11647541 (Version 1)
Quarter: 2015Q4

REPORT INFORMATION
  Report Type: Spontaneous
  Country: US (occurrence: None)
  Receive Date: 20151020
  Receipt Date: 20151020
  Transmission Date: 20160304
  Serious: No
  Sender: FDA-Public Use
  Company Number: None

PATIENT
  Age: 39 Year
  Sex: Female
  Weight: 87.09 kg

DRUGS (19)
  1. PREMPRO [Suspect]
     Active Substance: ESTROGENS, CONJUGATED\MEDROXYPROGESTERONE ACETATE
     Route: 048
     Dates: start: 2005
  2. VITAMIN B12 [Concomitant]
     Active Substance: CYANOCOBALAMIN
  3. FLEXERIL [Concomitant]
     Active Substance: CYCLOBENZAPRINE HYDROCHLORIDE
  4. ATRACEL ID 3 [Concomitant]
  5. TOPAMAX [Concomitant]
     Active Substance: TOPIRAMATE
  6. ASTELIN [Suspect]
     Active Substance: AZELASTINE HYDROCHLORIDE
  7. RED YEAST [Concomitant]
     Active Substance: YEAST
  8. L-LYSINE [Concomitant]
     Active Substance: LYSINE
  9. KRILL OMEGA 3 [Concomitant]
  10. D3 [Concomitant]
     Active Substance: 25-HYDROXYCHOLECALCIFEROL, 5-TRANS-
  11. VITAMIN E [Concomitant]
     Active Substance: .ALPHA.-TOCOPHEROL
  12. SLO DILAUDID [Concomitant]
  13. LYRICA [Suspect]
     Active Substance: PREGABALIN
  14. FLONASE [Suspect]
     Active Substance: FLUTICASONE PROPIONATE
  15. AIRBORNE C [Concomitant]
  16. KLONIPIN [Concomitant]
     Active Substance: CLONAZEPAM
  17. GINGER ROOT [Concomitant]
  18. COCONUT OIL [Concomitant]
     Active Substance: COCONUT OIL
  19. SELEPARINA [Concomitant]
     Active Substance: NADROPARIN CALCIUM

REACTIONS (1)
  - Seizure [None]
